FAERS Safety Report 8770823 (Version 2)
Quarter: 2013Q1

REPORT INFORMATION
  Report Type: Report from Study
  Country: JP (occurrence: JP)
  Receive Date: 20120906
  Receipt Date: 20130301
  Transmission Date: 20140127
  Serious: Yes (Other)
  Sender: FDA-Public Use
  Company Number: JP-009507513-1208JPN009821

PATIENT
  Age: 64 Year
  Sex: Female
  Weight: 51 kg

DRUGS (10)
  1. PEGINTRON [Suspect]
     Indication: CHRONIC HEPATITIS C
     Dosage: 1.5 MICROGRAM PER KILOGRAM, QW
     Route: 058
     Dates: start: 20120515, end: 20120619
  2. REBETOL [Suspect]
     Indication: CHRONIC HEPATITIS C
     Dosage: 600 MG, QD
     Route: 048
     Dates: start: 20120515, end: 20120611
  3. REBETOL [Suspect]
     Dosage: 400 MG, QD
     Route: 048
     Dates: start: 20120612, end: 20120618
  4. REBETOL [Suspect]
     Dosage: 200 MG, QD
     Route: 048
     Dates: start: 20120619, end: 20120625
  5. TELAVIC [Suspect]
     Indication: CHRONIC HEPATITIS C
     Dosage: 1500 MG, QD
     Route: 048
     Dates: start: 20120515, end: 20120625
  6. PARIET [Concomitant]
     Indication: DYSPEPSIA
     Dosage: 1 DF, QD
     Route: 048
  7. LOXONIN [Concomitant]
     Indication: PYREXIA
     Dosage: 1 DF, SINGLE USE
     Route: 048
     Dates: start: 20120515
  8. CELESTAMINE COMBINATION [Concomitant]
     Indication: PRURITUS
     Dosage: 4 DF, BID
     Route: 048
     Dates: start: 20120522
  9. CELESTAMINE COMBINATION [Concomitant]
     Indication: ECZEMA
  10. MAGNESIUM OXIDE [Concomitant]
     Indication: CONSTIPATION
     Dosage: UNK, QD
     Route: 048
     Dates: start: 20120525, end: 20120531

REACTIONS (2)
  - Anaemia [Recovering/Resolving]
  - Haemoglobin decreased [Not Recovered/Not Resolved]
